FAERS Safety Report 21086871 (Version 1)
Quarter: 2022Q3

REPORT INFORMATION
  Report Type: Spontaneous
  Country: JP (occurrence: JP)
  Receive Date: 20220715
  Receipt Date: 20220715
  Transmission Date: 20221026
  Serious: Yes (Death)
  Sender: FDA-Public Use
  Company Number: JP-JNJFOC-A-CH2016-135025

PATIENT
  Age: 29 Year
  Sex: Male

DRUGS (23)
  1. OPSUMIT [Suspect]
     Active Substance: MACITENTAN
     Indication: Pulmonary arterial hypertension
     Dosage: 10 MG, OD
     Route: 048
     Dates: start: 20151020, end: 20160420
  2. OPSUMIT [Suspect]
     Active Substance: MACITENTAN
     Indication: Pulmonary arterial hypertension
     Dosage: 5 MG, OD
     Route: 048
     Dates: start: 20160421, end: 20181118
  3. FUROSEMIDE [Concomitant]
     Active Substance: FUROSEMIDE
     Indication: Pulmonary arterial hypertension
     Route: 048
     Dates: start: 20160229
  4. FUROSEMIDE [Concomitant]
     Active Substance: FUROSEMIDE
     Indication: Oedema
     Route: 048
     Dates: start: 20170215, end: 20181118
  5. FUROSEMIDE [Concomitant]
     Active Substance: FUROSEMIDE
     Route: 048
     Dates: start: 20170205, end: 20181118
  6. SPIRONOLACTONE [Concomitant]
     Active Substance: SPIRONOLACTONE
     Indication: Pulmonary arterial hypertension
     Route: 048
     Dates: end: 20181118
  7. URSODIOL [Concomitant]
     Active Substance: URSODIOL
     Indication: Pulmonary arterial hypertension
     Route: 048
     Dates: end: 20181118
  8. AMIODARONE HYDROCHLORIDE [Concomitant]
     Active Substance: AMIODARONE HYDROCHLORIDE
     Indication: Arrhythmia
     Route: 048
     Dates: end: 20181118
  9. POTASSIUM ASPARTATE [Concomitant]
     Active Substance: POTASSIUM ASPARTATE
     Indication: Pulmonary arterial hypertension
     Route: 048
     Dates: end: 20160229
  10. BUFFERIN [Concomitant]
     Active Substance: ASPIRIN
     Indication: Arrhythmia
     Dosage: 81 MG, UNK
     Route: 048
     Dates: end: 20151124
  11. EDOXABAN TOSYLATE [Concomitant]
     Active Substance: EDOXABAN TOSYLATE
     Indication: Arrhythmia
     Route: 048
     Dates: start: 20151125, end: 20160209
  12. PILSICAINIDE HYDROCHLORIDE [Concomitant]
     Active Substance: PILSICAINIDE HYDROCHLORIDE
     Indication: Arrhythmia
     Route: 048
     Dates: start: 20151125
  13. BISOPROLOL FUMARATE [Concomitant]
     Active Substance: BISOPROLOL FUMARATE
     Indication: Arrhythmia
     Route: 048
     Dates: start: 20151210, end: 20160229
  14. BISOPROLOL FUMARATE [Concomitant]
     Active Substance: BISOPROLOL FUMARATE
     Route: 048
     Dates: start: 20160301, end: 20160324
  15. ELIQUIS [Concomitant]
     Active Substance: APIXABAN
     Indication: Arrhythmia
     Route: 048
     Dates: start: 20160210, end: 20181118
  16. APRINDINE HYDROCHLORIDE [Concomitant]
     Active Substance: APRINDINE HYDROCHLORIDE
     Indication: Arrhythmia
     Route: 048
     Dates: start: 20160210
  17. SAMSCA [Concomitant]
     Active Substance: TOLVAPTAN
     Indication: Arrhythmia
     Route: 048
     Dates: start: 20160301, end: 20161025
  18. SAMSCA [Concomitant]
     Active Substance: TOLVAPTAN
     Route: 048
     Dates: start: 20161026, end: 20181118
  19. CARVEDILOL [Concomitant]
     Active Substance: CARVEDILOL
     Indication: Arrhythmia
     Route: 048
     Dates: start: 20160224, end: 20160324
  20. CARVEDILOL [Concomitant]
     Active Substance: CARVEDILOL
     Route: 048
     Dates: start: 20160325, end: 20160331
  21. CARVEDILOL [Concomitant]
     Active Substance: CARVEDILOL
     Route: 048
     Dates: start: 20160401, end: 20181118
  22. VONOPRAZAN FUMARATE [Concomitant]
     Active Substance: VONOPRAZAN FUMARATE
     Indication: Prophylaxis against gastrointestinal ulcer
     Route: 048
     Dates: start: 20180411, end: 20181118
  23. SODIUM FERROUS CITRATE [Concomitant]
     Active Substance: SODIUM FERROUS CITRATE
     Indication: Anaemia prophylaxis
     Route: 048
     Dates: start: 20180717, end: 20181118

REACTIONS (11)
  - Cardiac failure [Fatal]
  - Nausea [Fatal]
  - Loss of consciousness [Fatal]
  - Syncope [Fatal]
  - Physical deconditioning [Fatal]
  - Cardio-respiratory arrest [Fatal]
  - Cardiac arrest [Fatal]
  - Decreased appetite [Recovered/Resolved]
  - Depression [Recovering/Resolving]
  - Haemoglobin decreased [Recovered/Resolved]
  - Oedema [Recovered/Resolved]

NARRATIVE: CASE EVENT DATE: 20160229
